FAERS Safety Report 5096143-2 (Version None)
Quarter: 2006Q3

REPORT INFORMATION
  Report Type: 
  Country: None (occurrence: None)
  Receive Date: 20060831
  Receipt Date: 20060817
  Transmission Date: 20061208
  Serious: Yes (Other)
  Sender: FDA-Public Use
  Company Number: 2006-BP-03848RO

PATIENT
  Age: 42 Year
  Sex: Male

DRUGS (3)
  1. METHADONE HCL [Suspect]
     Indication: DRUG ABUSER
     Dosage: 1 MG/ML UP TO 170 MG/DAY
  2. METHADONE HCL [Suspect]
     Indication: DRUG REHABILITATION
     Dosage: 1 MG/ML UP TO 170 MG/DAY
  3. LORAZEPAM [Concomitant]

REACTIONS (20)
  - AFFECT LABILITY [None]
  - AMNESIA [None]
  - BIOPSY KIDNEY ABNORMAL [None]
  - CONVULSION [None]
  - COORDINATION ABNORMAL [None]
  - DRUG ABUSER [None]
  - DYSARTHRIA [None]
  - ENCEPHALOPATHY [None]
  - HAEMODIALYSIS [None]
  - INCORRECT ROUTE OF DRUG ADMINISTRATION [None]
  - INTENTIONAL DRUG MISUSE [None]
  - METAL POISONING [None]
  - MICROCYTIC ANAEMIA [None]
  - MYOCLONUS [None]
  - MYOSCLEROSIS [None]
  - NEUTROPENIA [None]
  - OSTEOSCLEROSIS [None]
  - RED BLOOD CELL ABNORMALITY [None]
  - RENAL IMPAIRMENT [None]
  - TREATMENT NONCOMPLIANCE [None]
